FAERS Safety Report 10566164 (Version 4)
Quarter: 2014Q4

REPORT INFORMATION
  Report Type: Spontaneous
  Country: JP (occurrence: JP)
  Receive Date: 20141105
  Receipt Date: 20141217
  Transmission Date: 20150529
  Serious: Yes (Life-Threatening)
  Sender: FDA-Public Use
  Company Number: JP-PFIZER INC-2014304243

PATIENT
  Age: 45 Year
  Sex: Male
  Weight: 38.5 kg

DRUGS (14)
  1. FOSPHENYTOIN SODIUM. [Suspect]
     Active Substance: FOSPHENYTOIN SODIUM
     Indication: STATUS EPILEPTICUS
     Dosage: 337.5 MG, UNK
     Route: 042
     Dates: start: 20120511, end: 20120517
  2. NOBELBAR [Suspect]
     Active Substance: PHENOBARBITAL SODIUM
     Indication: STATUS EPILEPTICUS
     Dosage: 300 - 900 MG
     Dates: start: 20120511, end: 20120516
  3. FOSPHENYTOIN SODIUM. [Suspect]
     Active Substance: FOSPHENYTOIN SODIUM
     Dosage: 337.5 MG, UNK
     Route: 042
     Dates: start: 20120519, end: 20120527
  4. VANCOMYCIN HCL [Suspect]
     Active Substance: VANCOMYCIN HYDROCHLORIDE
     Dosage: 1-2 G, UNK
     Dates: start: 20120508, end: 20120510
  5. MINOCYCLINE [Suspect]
     Active Substance: MINOCYCLINE\MINOCYCLINE HYDROCHLORIDE
     Dosage: 200 MG, UNK
     Dates: start: 20120508, end: 20120510
  6. VANCOMYCIN HCL [Suspect]
     Active Substance: VANCOMYCIN HYDROCHLORIDE
     Dosage: 1-2 G, UNK
     Dates: start: 20120524, end: 20120527
  7. DEPAKENE [Suspect]
     Active Substance: VALPROIC ACID
     Indication: STATUS EPILEPTICUS
     Dosage: 200 - 400 MG, UNK
     Route: 048
     Dates: start: 20120516, end: 20120528
  8. KEPPRA [Concomitant]
     Active Substance: LEVETIRACETAM
     Indication: STATUS EPILEPTICUS
     Dosage: 500 - 1500 MG
     Route: 048
     Dates: start: 20120515, end: 20120528
  9. PRIDOL [Concomitant]
     Active Substance: METHYLPREDNISOLONE SODIUM SUCCINATE
     Indication: IMMUNOSUPPRESSION
     Dosage: 1000 MG, UNK
     Dates: start: 20120509, end: 20120511
  10. FOSPHENYTOIN SODIUM. [Suspect]
     Active Substance: FOSPHENYTOIN SODIUM
     Dosage: 900 MG, UNK
     Route: 042
     Dates: start: 20120518, end: 20120518
  11. PREDONINE [Concomitant]
     Active Substance: PREDNISOLONE\PREDNISOLONE ACETATE\PREDNISOLONE SODIUM SUCCINATE
     Indication: IMMUNOSUPPRESSION
     Dosage: 20 - 100 MG, UNK
     Dates: start: 20120512, end: 20120521
  12. FOSPHENYTOIN SODIUM. [Suspect]
     Active Substance: FOSPHENYTOIN SODIUM
     Dosage: 375 MG, UNK
     Route: 042
     Dates: start: 20120528, end: 20120528
  13. DIPRIVAN [Concomitant]
     Active Substance: PROPOFOL
     Indication: MECHANICAL VENTILATION
     Dosage: UNK
     Dates: start: 20120510, end: 20120518
  14. DORMICUM [Concomitant]
     Active Substance: MIDAZOLAM\MIDAZOLAM HYDROCHLORIDE
     Indication: MECHANICAL VENTILATION
     Dosage: UNK
     Dates: start: 20120510, end: 20120518

REACTIONS (1)
  - Histiocytosis haematophagic [Recovered/Resolved]

NARRATIVE: CASE EVENT DATE: 20120531
